FAERS Safety Report 6867383-4 (Version None)
Quarter: 2010Q3

REPORT INFORMATION
  Report Type: 
  Country: None (occurrence: None)
  Receive Date: 20100722
  Receipt Date: 20100709
  Transmission Date: 20110219
  Serious: Yes (Life-Threatening)
  Sender: FDA-Public Use
  Company Number: DE-JNJFOC-20100703921

PATIENT
  Sex: Male

DRUGS (5)
  1. REOPRO [Suspect]
     Indication: MYOCARDIAL INFARCTION
     Dosage: 10:51 TO 16:00
     Route: 042
  2. REOPRO [Suspect]
     Dosage: @10:49
     Route: 042
  3. HEPARIN [Concomitant]
     Indication: MYOCARDIAL INFARCTION
  4. CLOPIDOGREL [Concomitant]
     Indication: MYOCARDIAL INFARCTION
  5. ACETYLSALICYLIC ACID [Concomitant]
     Indication: MYOCARDIAL INFARCTION

REACTIONS (9)
  - ATRIAL FIBRILLATION [None]
  - CARDIOGENIC SHOCK [None]
  - MULTI-ORGAN DISORDER [None]
  - PERICARDIAL HAEMORRHAGE [None]
  - PNEUMONIA [None]
  - SEPSIS [None]
  - THROMBOCYTOPENIA [None]
  - VENTRICULAR SEPTAL DEFECT [None]
  - VENTRICULAR TACHYCARDIA [None]
